FAERS Safety Report 8607454-5 (Version None)
Quarter: 2012Q3

REPORT INFORMATION
  Report Type: 
  Country: None (occurrence: None)
  Receive Date: 20120821
  Receipt Date: 20120813
  Transmission Date: 20120928
  Serious: Yes (Death, Life-Threatening, Hospitalization, Disabling)
  Sender: FDA-Public Use
  Company Number: MX-SANOFI-AVENTIS-2012SA058415

PATIENT
  Age: 29 Year
  Sex: Male
  Weight: 58 kg

DRUGS (2)
  1. LANTUS [Suspect]
     Indication: DIABETES MELLITUS
     Dosage: STRENGTH: 100IU/ML
     Route: 058
     Dates: start: 20090101, end: 20120504
  2. INSULIN LISPRO [Suspect]
     Indication: DIABETES MELLITUS
     Dosage: STRENGTH: 100IU/ML
     Route: 058
     Dates: start: 20090101, end: 20120504

REACTIONS (8)
  - HYPERGLYCAEMIA [None]
  - UNEVALUABLE EVENT [None]
  - TOE AMPUTATION [None]
  - FINGER AMPUTATION [None]
  - DIABETIC COMPLICATION [None]
  - WEIGHT DECREASED [None]
  - CARDIOVASCULAR DISORDER [None]
  - SYSTEMIC LUPUS ERYTHEMATOSUS [None]
